FAERS Safety Report 8848090 (Version 2)
Quarter: 2015Q3

REPORT INFORMATION
  Report Type: Report from Study
  Country: US (occurrence: US)
  Receive Date: 20121018
  Receipt Date: 20150821
  Transmission Date: 20151125
  Serious: Yes (Other)
  Sender: FDA-Public Use
  Company Number: US-ROCHE-1140391

PATIENT
  Sex: Female
  Weight: 17.3 kg

DRUGS (1)
  1. PROTROPIN [Suspect]
     Active Substance: SOMATREM
     Indication: NOONAN SYNDROME
     Route: 065
     Dates: start: 1998

REACTIONS (5)
  - Abdominal discomfort [Unknown]
  - Scar [Unknown]
  - Hyperreflexia [Unknown]
  - Noonan syndrome [Unknown]
  - Contusion [Unknown]
